FAERS Safety Report 8743111 (Version 2)
Quarter: 2012Q4

REPORT INFORMATION
  Report Type: 
  Country: BR (occurrence: BR)
  Receive Date: 20120824
  Receipt Date: 20121004
  Transmission Date: 20130627
  Serious: Yes (Hospitalization, Other)
  Sender: FDA-Public Use
  Company Number: PHHY2012BR072401

PATIENT
  Age: 67 Year
  Sex: Male

DRUGS (2)
  1. DIOVAN AMLO FIX [Suspect]
     Indication: HYPERTENSION
     Dosage: 1 DF (160/5mg), daily
  2. DIOVAN AMLO FIX [Suspect]
     Dosage: 0.5 DF (160/5mg) daily

REACTIONS (6)
  - Cerebrovascular accident [Recovering/Resolving]
  - Speech disorder [Recovering/Resolving]
  - Gait disturbance [Recovering/Resolving]
  - Visual impairment [Recovering/Resolving]
  - Fluid retention [Recovering/Resolving]
  - Wrong technique in drug usage process [Unknown]
